FAERS Safety Report 23306300 (Version 2)
Quarter: 2023Q4

REPORT INFORMATION
  Report Type: Spontaneous
  Country: IT (occurrence: IT)
  Receive Date: 20231218
  Receipt Date: 20231227
  Transmission Date: 20240110
  Serious: Yes (Congenital Anomaly, Other)
  Sender: FDA-Public Use
  Company Number: IT-ALKEM LABORATORIES LIMITED-IT-ALKEM-2023-15635

PATIENT
  Sex: Male

DRUGS (1)
  1. METHADONE HYDROCHLORIDE [Suspect]
     Active Substance: METHADONE HYDROCHLORIDE
     Indication: Product used for unknown indication
     Dosage: UNK
     Route: 015

REACTIONS (4)
  - Congenital nystagmus [Unknown]
  - Foetal exposure during pregnancy [Unknown]
  - Developmental coordination disorder [Unknown]
  - Visual impairment [Unknown]
